FAERS Safety Report 5372488-3 (Version None)
Quarter: 2007Q2

REPORT INFORMATION
  Report Type: 
  Country: None (occurrence: None)
  Receive Date: 20070627
  Receipt Date: 20070614
  Transmission Date: 20071010
  Serious: Yes (Hospitalization, Other)
  Sender: FDA-Public Use
  Company Number: US-ELI_LILLY_AND_COMPANY-US200705005718

PATIENT
  Sex: Female
  Weight: 70.748 kg

DRUGS (10)
  1. EVISTA [Suspect]
     Indication: OSTEOPOROSIS PROPHYLAXIS
     Dosage: 60 MG, DAILY (1/D)
     Route: 048
     Dates: start: 19990101
  2. FOLIC ACID [Concomitant]
  3. COZAAR [Concomitant]
  4. LASIX [Concomitant]
  5. TOPAMAX [Concomitant]
  6. OMEPRAZOLE [Concomitant]
  7. MIRAPEX [Concomitant]
  8. CYMBALTA [Concomitant]
  9. PULMICORT [Concomitant]
  10. COMBIVENT [Concomitant]

REACTIONS (1)
  - BREAST CANCER [None]
